FAERS Safety Report 8251239-9 (Version None)
Quarter: 2012Q2

REPORT INFORMATION
  Report Type: 
  Country: None (occurrence: None)
  Receive Date: 20120402
  Receipt Date: 20120326
  Transmission Date: 20120825
  Serious: Yes (Hospitalization)
  Sender: FDA-Public Use
  Company Number: FR-PFIZER INC-2004237194FR

PATIENT
  Age: 31 Year
  Sex: Female

DRUGS (10)
  1. ACODIN [Suspect]
     Indication: COUGH
     Route: 048
     Dates: start: 20040517, end: 20040524
  2. DESLORATADINE [Suspect]
     Indication: COUGH
     Dosage: UNK
     Route: 048
     Dates: start: 20040517, end: 20040524
  3. ROXITHROMYCIN [Suspect]
     Indication: PYREXIA
     Dosage: 150 MG, QD
     Route: 048
     Dates: start: 20040519, end: 20040524
  4. PREDNISOLONE [Concomitant]
  5. SOLU-MEDROL [Concomitant]
  6. EPIRUBICIN HYDROCHLORIDE [Suspect]
     Indication: BREAST CANCER
     Dosage: 135 MG, CYCLIC
     Route: 042
     Dates: start: 20040510, end: 20040519
  7. FLUOROURACIL [Suspect]
     Indication: BREAST CANCER
     Dosage: 880 MG, CYCLIC
     Route: 042
     Dates: start: 20040510, end: 20040519
  8. ACETAMINOPHEN [Suspect]
     Indication: PYREXIA
     Dosage: 500 MG, UNK
     Route: 048
     Dates: start: 20040519
  9. ONDANSETRON HCL [Suspect]
     Dosage: 8 MG, UNK
     Dates: start: 20040511
  10. CYCLOPHOSPHAMIDE [Suspect]
     Indication: BREAST CANCER
     Dosage: 880 MG, CYCLIC
     Route: 042
     Dates: start: 20040510, end: 20040519

REACTIONS (3)
  - HEPATITIS [None]
  - ASPARTATE AMINOTRANSFERASE INCREASED [None]
  - ALANINE AMINOTRANSFERASE INCREASED [None]
